FAERS Safety Report 24060821 (Version 1)
Quarter: 2024Q3

REPORT INFORMATION
  Report Type: Report from Study
  Country: CN (occurrence: CN)
  Receive Date: 20240708
  Receipt Date: 20240708
  Transmission Date: 20241017
  Serious: Yes (Hospitalization)
  Sender: ELI LILLY AND CO
  Company Number: CN-ELI_LILLY_AND_COMPANY-CN202406018585

PATIENT
  Age: 58 Year
  Sex: Female

DRUGS (2)
  1. RETEVMO [Suspect]
     Active Substance: SELPERCATINIB
     Indication: Lung neoplasm malignant
     Dosage: 80 MG, BID
     Route: 048
     Dates: start: 20240524
  2. RETEVMO [Suspect]
     Active Substance: SELPERCATINIB
     Dosage: ONE CAPSULE IN THE MORNING AND ONE CAPSULE IN THE EVENING, BID
     Route: 048

REACTIONS (5)
  - Dermatitis allergic [Unknown]
  - Trigeminal neuralgia [Not Recovered/Not Resolved]
  - Night sweats [Not Recovered/Not Resolved]
  - Paraesthesia [Not Recovered/Not Resolved]
  - Liver function test abnormal [Unknown]

NARRATIVE: CASE EVENT DATE: 20240101
